FAERS Safety Report 10008748 (Version 2)
Quarter: 2014Q1

REPORT INFORMATION
  Report Type: Spontaneous
  Country: US (occurrence: US)
  Receive Date: 20140312
  Receipt Date: 20140312
  Transmission Date: 20141002
  Serious: Yes (Other)
  Sender: FDA-Public Use
  Company Number: US-INCYTE CORPORATION-2012IN000791

PATIENT
  Age: 63 Year
  Sex: Male
  Weight: 73.8 kg

DRUGS (4)
  1. JAKAFI [Suspect]
     Indication: MYELOFIBROSIS
     Dosage: 20 MG, BID
     Route: 048
     Dates: start: 20111230, end: 20120420
  2. ASA [Concomitant]
     Indication: PLATELET COUNT DECREASED
     Dosage: 81 MG, QOD
     Route: 048
  3. TYLENOL [Concomitant]
     Dosage: 2 TABS, QHS
     Route: 048
  4. COLACE [Concomitant]
     Dosage: 2 CAPSULES

REACTIONS (7)
  - Splenectomy [Not Recovered/Not Resolved]
  - Dizziness [Unknown]
  - Fatigue [Unknown]
  - Lethargy [Unknown]
  - Anaemia [Not Recovered/Not Resolved]
  - Thrombocytosis [Unknown]
  - Leukocytosis [Unknown]
